FAERS Safety Report 7725664-6 (Version None)
Quarter: 2011Q3

REPORT INFORMATION
  Report Type: 
  Country: None (occurrence: None)
  Receive Date: 20110902
  Receipt Date: 20110819
  Transmission Date: 20111222
  Serious: Yes (Hospitalization, Other)
  Sender: FDA-Public Use
  Company Number: PHHY2011AU68190

PATIENT
  Sex: Female

DRUGS (7)
  1. FLUTICASONE PROPIONATE [Concomitant]
  2. DIGOXIN [Concomitant]
     Dosage: 62.5 UG, UNK
  3. MULTIVITAMIN [Concomitant]
  4. AMLODIPINE [Concomitant]
  5. COLECALCIFEROL [Concomitant]
  6. ZOLEDRONOC ACID [Suspect]
     Indication: SPINAL OSTEOARTHRITIS
     Dosage: 5 MG,
     Route: 042
     Dates: start: 20100720
  7. ACETAMINOPHEN [Concomitant]
     Dosage: 1 G, TID

REACTIONS (11)
  - CHRONIC OBSTRUCTIVE PULMONARY DISEASE [None]
  - BLOOD CHLORIDE INCREASED [None]
  - INFLUENZA [None]
  - HYPERSENSITIVITY [None]
  - BLOOD UREA INCREASED [None]
  - FALL [None]
  - LOWER RESPIRATORY TRACT INFECTION [None]
  - GLOMERULAR FILTRATION RATE DECREASED [None]
  - PNEUMONIA [None]
  - CELLULITIS [None]
  - ANION GAP DECREASED [None]
